FAERS Safety Report 17239984 (Version 1)
Quarter: 2020Q1

REPORT INFORMATION
  Report Type: Spontaneous
  Country: US (occurrence: US)
  Receive Date: 20200107
  Receipt Date: 20200107
  Transmission Date: 20200409
  Serious: No
  Sender: FDA-Public Use
  Company Number: US-JNJFOC-20200101107

PATIENT
  Sex: Female

DRUGS (2)
  1. ALLEGRA [Concomitant]
     Active Substance: FEXOFENADINE HYDROCHLORIDE
     Indication: MECHANICAL URTICARIA
     Route: 065
     Dates: start: 2011
  2. PEPCID AC [Suspect]
     Active Substance: FAMOTIDINE
     Indication: MECHANICAL URTICARIA
     Route: 048
     Dates: start: 2011

REACTIONS (3)
  - Product use in unapproved indication [Unknown]
  - Therapeutic response unexpected [Unknown]
  - Off label use [Unknown]

NARRATIVE: CASE EVENT DATE: 2011
